FAERS Safety Report 14930718 (Version 1)
Quarter: 2018Q2

REPORT INFORMATION
  Report Type: Spontaneous
  Country: US (occurrence: US)
  Receive Date: 20180523
  Receipt Date: 20180523
  Transmission Date: 20180711
  Serious: No
  Sender: FDA-Public Use
  Company Number: US-ASTRAZENECA-2018SE60657

PATIENT
  Sex: Female

DRUGS (2)
  1. FASENRA [Suspect]
     Active Substance: BENRALIZUMAB
     Indication: ASTHMA
     Route: 058
     Dates: start: 20180430
  2. TYLENOL [Concomitant]
     Active Substance: ACETAMINOPHEN
     Indication: PYREXIA
     Dosage: 500.0MG UNKNOWN
     Route: 048

REACTIONS (7)
  - Fatigue [Unknown]
  - Hyperhidrosis [Unknown]
  - Myalgia [Unknown]
  - Feeling of body temperature change [Unknown]
  - Pyrexia [Unknown]
  - Influenza like illness [Unknown]
  - Bone pain [Unknown]
